FAERS Safety Report 7186998-X (Version None)
Quarter: 2010Q4

REPORT INFORMATION
  Report Type: 
  Country: None (occurrence: None)
  Receive Date: 20101222
  Receipt Date: 20100709
  Transmission Date: 20110411
  Serious: No
  Sender: FDA-Public Use
  Company Number: US-AMGEN-KDL420016

PATIENT

DRUGS (4)
  1. ENBREL [Suspect]
     Indication: RHEUMATOID ARTHRITIS
     Dosage: 50 MG, QWK
     Route: 058
     Dates: start: 20080725
  2. PREDNISONE [Concomitant]
     Dosage: UNK UNK, UNK
  3. RANITIDINE [Concomitant]
     Dosage: UNK UNK, UNK
  4. ERGOCALCIFEROL [Concomitant]
     Dosage: UNK UNK, UNK

REACTIONS (6)
  - ADVERSE DRUG REACTION [None]
  - DYSHIDROSIS [None]
  - IMPAIRED HEALING [None]
  - SCAB [None]
  - SKIN HYPERTROPHY [None]
  - STRESS [None]
